FAERS Safety Report 10404184 (Version 1)
Quarter: 2014Q1

REPORT INFORMATION
  Report Type: Spontaneous
  Country: US (occurrence: None)
  Receive Date: 20131226
  Receipt Date: 20131226
  Transmission Date: 20141002
  Serious: Yes (Other)
  Sender: FDA-Public Use
  Company Number: PHEH2012US004186

PATIENT
  Age: 28 Year
  Sex: Female

DRUGS (12)
  1. AFINITOR (RAD) [Suspect]
     Indication: ASTROCYTOMA
     Route: 048
     Dates: start: 20110906
  2. TOPAMAX (TOPIRAMATE) [Suspect]
  3. VALIUM (DIAZEPAM) [Concomitant]
  4. VITAMINS NOS (VITAMINS NOS) [Concomitant]
  5. METRONIDAZOLE (METRONIDAZOLE) [Suspect]
  6. DOXYCYCLINE (DOXYCYCLINE) [Concomitant]
  7. ACTONERL (RISEDRONATE SODIUM) [Concomitant]
  8. LEVOXYL (LEVOTHYROXINE SODIUM) [Concomitant]
  9. FIBERCON (LOLYCARBOPHIL) [Concomitant]
  10. FERROUS SULFATE (FERROUS SULFATE) [Concomitant]
  11. LORAZEPAM (LORAZEPAM) [Concomitant]
  12. NASONEX (MOMETASONE FUROATE) [Concomitant]

REACTIONS (13)
  - Convulsion [None]
  - Urinary tract infection [None]
  - Urine output increased [None]
  - Sinus disorder [None]
  - Somnolence [None]
  - Gait disturbance [None]
  - Hypersomnia [None]
  - Cough [None]
  - Nail disorder [None]
  - Protein urine present [None]
  - Blood creatinine increased [None]
  - Metrorrhagia [None]
  - Drug interaction [None]
